FAERS Safety Report 7288015-X (Version None)
Quarter: 2011Q1

REPORT INFORMATION
  Report Type: 
  Country: None (occurrence: None)
  Receive Date: 20110204
  Receipt Date: 20110204
  Transmission Date: 20110831
  Serious: Yes (Hospitalization)
  Sender: FDA-Public Use
  Company Number: None

PATIENT
  Age: 49 Year
  Sex: Male
  Weight: 79.3795 kg

DRUGS (1)
  1. SPIRIVA [Suspect]
     Indication: CHRONIC OBSTRUCTIVE PULMONARY DISEASE
     Dosage: 1 CAPSULE ONCE A DAY INHAL
     Route: 055
     Dates: start: 20101214, end: 20101218

REACTIONS (5)
  - DIZZINESS [None]
  - SYNCOPE [None]
  - DYSPNOEA [None]
  - ROAD TRAFFIC ACCIDENT [None]
  - CONFUSIONAL STATE [None]
